FAERS Safety Report 6406744-4 (Version None)
Quarter: 2009Q4

REPORT INFORMATION
  Report Type: 
  Country: None (occurrence: None)
  Receive Date: 20091020
  Receipt Date: 20091009
  Transmission Date: 20100525
  Serious: Yes (Other)
  Sender: FDA-Public Use
  Company Number: US-JNJFOC-20091004408

PATIENT
  Age: 7 Week
  Sex: Female
  Weight: 4.08 kg

DRUGS (3)
  1. TYLENOL (CAPLET) [Suspect]
     Route: 048
     Dates: start: 20090924, end: 20091007
  2. TYLENOL (CAPLET) [Suspect]
     Indication: PAIN
     Route: 048
     Dates: start: 20090924, end: 20091007
  3. AXID [Concomitant]
     Indication: GASTROOESOPHAGEAL REFLUX DISEASE

REACTIONS (3)
  - DIARRHOEA [None]
  - TRANSMISSION OF AN INFECTIOUS AGENT VIA A MEDICINAL PRODUCT [None]
  - WEIGHT DECREASED [None]
